FAERS Safety Report 24155413 (Version 1)
Quarter: 2024Q3

REPORT INFORMATION
  Report Type: Spontaneous
  Country: US (occurrence: US)
  Receive Date: 20240731
  Receipt Date: 20240731
  Transmission Date: 20241016
  Serious: Yes (Hospitalization, Other)
  Sender: Vantive US Healthcare
  Company Number: US-VANTIVE-2024VAN018585

PATIENT
  Sex: Male

DRUGS (2)
  1. EXTRANEAL [Suspect]
     Active Substance: CALCIUM CHLORIDE\ICODEXTRIN\MAGNESIUM CHLORIDE\SODIUM CHLORIDE\SODIUM LACTATE
     Route: 033
  2. DIANEAL [Suspect]
     Active Substance: CALCIUM CHLORIDE\DEXTROSE\MAGNESIUM CHLORIDE\SODIUM CHLORIDE\SODIUM LACTATE
     Route: 033

REACTIONS (4)
  - Peritonitis bacterial [Recovered/Resolved]
  - Peritonitis bacterial [Recovered/Resolved]
  - Peritonitis bacterial [Recovered/Resolved]
  - Hypervolaemia [Unknown]

NARRATIVE: CASE EVENT DATE: 20220726
